FAERS Safety Report 5317244-7 (Version None)
Quarter: 2007Q2

REPORT INFORMATION
  Report Type: 
  Country: None (occurrence: None)
  Receive Date: 20070504
  Receipt Date: 20070501
  Transmission Date: 20071010
  Serious: Yes (Hospitalization, Other)
  Sender: FDA-Public Use
  Company Number: GB-BOEHRINGER INGELHEIM PHARMACEUTICALS, INC.-2007-UK-01425UK

PATIENT
  Sex: Female

DRUGS (2)
  1. VIRAMUNE [Suspect]
     Indication: ACUTE HIV INFECTION
  2. KIVEXA [Suspect]
     Indication: ACUTE HIV INFECTION

REACTIONS (1)
  - GUILLAIN-BARRE SYNDROME [None]
